FAERS Safety Report 5535079-7 (Version None)
Quarter: 2007Q4

REPORT INFORMATION
  Report Type: 
  Country: None (occurrence: None)
  Receive Date: 20071203
  Receipt Date: 20071121
  Transmission Date: 20080405
  Serious: Yes (Hospitalization)
  Sender: FDA-Public Use
  Company Number: MEDI-0006209

PATIENT
  Age: 2 Month
  Weight: 3.087 kg

DRUGS (4)
  1. SYNAGIS [Suspect]
     Indication: PREMATURE BABY
     Dosage: 0.4 MGL, INTRAVENOUS; 06 ML, INTRAVENOUS
     Route: 042
     Dates: start: 20070921
  2. MULTIVITAMIN (VITAMIN NOS) [Concomitant]
  3. FERRUMATE (FERROUS GLUCONATE) [Concomitant]
  4. URSODEOXYCHOLIC ACID (URSODOXYCHOLIC ACID) [Concomitant]

REACTIONS (2)
  - LARYNGEAL STENOSIS [None]
  - RESPIRATORY SYNCYTIAL VIRUS INFECTION [None]
